FAERS Safety Report 8008192-2 (Version None)
Quarter: 2011Q4

REPORT INFORMATION
  Report Type: 
  Country: None (occurrence: None)
  Receive Date: 20111227
  Receipt Date: 20111220
  Transmission Date: 20120403
  Serious: Yes (Hospitalization)
  Sender: FDA-Public Use
  Company Number: FR-SANOFI-AVENTIS-2011SA083247

PATIENT
  Age: 14 Year
  Sex: Female

DRUGS (9)
  1. MYCOPHENOLATE MOFETIL (CELLCEPT) [Concomitant]
     Indication: LUNG TRANSPLANT
     Route: 065
     Dates: start: 20051020
  2. INSULIN [Concomitant]
     Route: 065
  3. RIFADIN [Suspect]
     Indication: PULMONARY TUBERCULOSIS
     Route: 048
     Dates: start: 20110608, end: 20111009
  4. CANCIDAS [Concomitant]
     Indication: ASPERGILLOSIS
     Route: 065
     Dates: start: 20110901, end: 20110901
  5. TOCO [Concomitant]
     Route: 065
  6. TACROLIMUS [Concomitant]
     Indication: LUNG TRANSPLANT
     Route: 065
  7. RIMIFON [Suspect]
     Indication: PULMONARY TUBERCULOSIS
     Route: 048
     Dates: start: 20110608, end: 20111009
  8. CREON [Concomitant]
     Route: 065
  9. RETINOL [Concomitant]
     Route: 065

REACTIONS (2)
  - CHOLESTASIS [None]
  - JAUNDICE [None]
